FAERS Safety Report 6295700-5 (Version None)
Quarter: 2009Q3

REPORT INFORMATION
  Report Type: 
  Country: None (occurrence: None)
  Receive Date: 20090803
  Receipt Date: 20090803
  Transmission Date: 20100115
  Serious: No
  Sender: FDA-Public Use
  Company Number: None

PATIENT
  Age: 52 Year
  Sex: Male
  Weight: 86.7 kg

DRUGS (1)
  1. INFLIXIMAB [Suspect]
     Indication: CHEMOTHERAPY
     Dosage: 400MG X1 IV
     Route: 042
     Dates: start: 20090728

REACTIONS (2)
  - RASH [None]
  - URTICARIA [None]
